FAERS Safety Report 9359770 (Version 1)
Quarter: 2013Q2

REPORT INFORMATION
  Report Type: Spontaneous
  Country: US (occurrence: US)
  Receive Date: 20130621
  Receipt Date: 20130621
  Transmission Date: 20140414
  Serious: No
  Sender: FDA-Public Use
  Company Number: US-009507513-1306USA003939

PATIENT
  Sex: Male

DRUGS (1)
  1. AZASITE [Suspect]
     Indication: DRY EYE
     Dosage: UNK UNK, ONCE
     Route: 047

REACTIONS (2)
  - Pain [Unknown]
  - Off label use [Unknown]
